FAERS Safety Report 23100399 (Version 1)
Quarter: 2023Q4

REPORT INFORMATION
  Report Type: Spontaneous
  Country: US (occurrence: US)
  Receive Date: 20231024
  Receipt Date: 20231024
  Transmission Date: 20240110
  Serious: Yes (Other)
  Sender: FDA-Public Use
  Company Number: US-PFIZER INC-PV202300174041

PATIENT
  Age: 75 Year

DRUGS (1)
  1. PALBOCICLIB [Suspect]
     Active Substance: PALBOCICLIB
     Dosage: DAYS 1 THROUGH 21 OF A 28 DAY TREATMENT CYCLE
     Route: 048

REACTIONS (1)
  - Cytopenia [Unknown]
